FAERS Safety Report 7022132-4 (Version None)
Quarter: 2010Q3

REPORT INFORMATION
  Report Type: 
  Country: None (occurrence: None)
  Receive Date: 20100930
  Receipt Date: 20100915
  Transmission Date: 20110219
  Serious: Yes (Other)
  Sender: FDA-Public Use
  Company Number: PHFR2010IE02029

PATIENT
  Sex: Male
  Weight: 86.6 kg

DRUGS (2)
  1. CLOZARIL [Suspect]
     Indication: SCHIZOPHRENIA
     Dosage: 700 MG UNK
     Route: 048
     Dates: start: 20090408
  2. KEPPRA [Suspect]
     Indication: CONVULSION
     Dosage: 1500 MG, BID
     Dates: start: 20090101

REACTIONS (3)
  - DYSTONIA [None]
  - MEAN CELL HAEMOGLOBIN CONCENTRATION [None]
  - THROMBOCYTOPENIA [None]
